FAERS Safety Report 4821574-2 (Version None)
Quarter: 2005Q4

REPORT INFORMATION
  Report Type: 
  Country: None (occurrence: None)
  Receive Date: 20051103
  Receipt Date: 20051028
  Transmission Date: 20060501
  Serious: Yes (Life-Threatening, Hospitalization)
  Sender: FDA-Public Use
  Company Number: TPA2005A01032

PATIENT
  Age: 54 Year
  Sex: Male
  Weight: 66.2252 kg

DRUGS (5)
  1. ACTOS [Suspect]
     Indication: DIABETES MELLITUS NON-INSULIN-DEPENDENT
     Dosage: 1 IN 1 D, PER ORAL
     Route: 048
     Dates: start: 20050101, end: 20050801
  2. INTERFERON (INTERFERON) [Suspect]
     Indication: HEPATITIS C
  3. TACROLIMUS (TACROLIMUS) [Concomitant]
  4. FLORINEF [Concomitant]
  5. LEVOTHYROXINE SODIUM [Concomitant]

REACTIONS (9)
  - ABASIA [None]
  - BALANCE DISORDER [None]
  - BLOOD GLUCOSE INCREASED [None]
  - BLOOD MAGNESIUM DECREASED [None]
  - DIZZINESS [None]
  - DRUG TOXICITY [None]
  - HEPATITIS [None]
  - HEPATOTOXICITY [None]
  - ORTHOSTATIC HYPOTENSION [None]
